FAERS Safety Report 7559137-0 (Version None)
Quarter: 2011Q2

REPORT INFORMATION
  Report Type: 
  Country: None (occurrence: None)
  Receive Date: 20110525
  Receipt Date: 20110304
  Transmission Date: 20111010
  Serious: No
  Sender: FDA-Public Use
  Company Number: 324757

PATIENT
  Age: 59 Year
  Sex: Male

DRUGS (3)
  1. VICTOZA [Suspect]
     Indication: TYPE 2 DIABETES MELLITUS
     Dosage: 0.6 MG, QD, SUBCUTANEOUS, 1.2 MG, QD, 1.8 MG,QD
     Route: 058
     Dates: start: 20110111
  2. VICTOZA [Suspect]
     Indication: TYPE 2 DIABETES MELLITUS
     Dosage: 0.6 MG, QD, SUBCUTANEOUS, 1.2 MG, QD, 1.8 MG,QD
     Route: 058
     Dates: start: 20110128, end: 20110225
  3. VICTOZA [Suspect]
     Indication: TYPE 2 DIABETES MELLITUS
     Dosage: 0.6 MG, QD, SUBCUTANEOUS, 1.2 MG, QD, 1.8 MG,QD
     Route: 058
     Dates: start: 20110122

REACTIONS (5)
  - INJECTION SITE RASH [None]
  - WEIGHT DECREASED [None]
  - GENITAL ERYTHEMA [None]
  - BLOOD GLUCOSE INCREASED [None]
  - GENITAL BURNING SENSATION [None]
